FAERS Safety Report 17229046 (Version 1)
Quarter: 2020Q1

REPORT INFORMATION
  Report Type: Spontaneous
  Country: DE (occurrence: DE)
  Receive Date: 20200103
  Receipt Date: 20200103
  Transmission Date: 20200409
  Serious: Yes (Other)
  Sender: FDA-Public Use
  Company Number: NVSC2019DE083784

PATIENT
  Age: 6 Month
  Sex: Female

DRUGS (4)
  1. VINBLASTINE [Concomitant]
     Active Substance: VINBLASTINE
     Indication: LANGERHANS^ CELL HISTIOCYTOSIS
     Dosage: UNK, Q3W
     Route: 065
  2. PREDNISOLONE. [Concomitant]
     Active Substance: PREDNISOLONE
     Indication: LANGERHANS^ CELL HISTIOCYTOSIS
     Dosage: UNK, Q3W
     Route: 065
  3. METHOTREXATE. [Suspect]
     Active Substance: METHOTREXATE
     Indication: LANGERHANS^ CELL HISTIOCYTOSIS
     Dosage: UNK, QW
     Route: 065
  4. MERCAPTOPURINE. [Suspect]
     Active Substance: MERCAPTOPURINE
     Indication: LANGERHANS^ CELL HISTIOCYTOSIS
     Dosage: UNK, QID
     Route: 065

REACTIONS (4)
  - Langerhans^ cell histiocytosis [Unknown]
  - Therapeutic response decreased [Unknown]
  - Product use in unapproved indication [Unknown]
  - Malignant neoplasm progression [Unknown]
